FAERS Safety Report 8849457 (Version 2)
Quarter: 2013Q1

REPORT INFORMATION
  Report Type: Spontaneous
  Country: US (occurrence: US)
  Receive Date: 20121019
  Receipt Date: 20130116
  Transmission Date: 20140127
  Serious: Yes (Disabling)
  Sender: FDA-Public Use
  Company Number: US-PFIZER INC-2012259524

PATIENT
  Sex: 0

DRUGS (2)
  1. RELPAX [Suspect]
     Dosage: UNK
  2. ZOMIG [Suspect]
     Dosage: 5 MG, UNK

REACTIONS (2)
  - Migraine [Unknown]
  - Drug ineffective [Unknown]
